FAERS Safety Report 17061480 (Version 2)
Quarter: 2020Q1

REPORT INFORMATION
  Report Type: Report from Study
  Country: CA (occurrence: CA)
  Receive Date: 20191121
  Receipt Date: 20200206
  Transmission Date: 20200409
  Serious: Yes (Death)
  Sender: FDA-Public Use
  Company Number: CA-TOLMAR, INC.-19CA001122

PATIENT
  Age: 75 Year
  Sex: Male

DRUGS (1)
  1. ELIGARD [Suspect]
     Active Substance: LEUPROLIDE ACETATE
     Indication: PROSTATE CANCER
     Dosage: 22.5 MG, Q3MONTHS
     Route: 065
     Dates: start: 20190826

REACTIONS (1)
  - Death [Fatal]

NARRATIVE: CASE EVENT DATE: 20191025
